FAERS Safety Report 7956267-6 (Version None)
Quarter: 2011Q4

REPORT INFORMATION
  Report Type: 
  Country: None (occurrence: None)
  Receive Date: 20111109
  Receipt Date: 20111103
  Transmission Date: 20120403
  Serious: Yes (Hospitalization)
  Sender: FDA-Public Use
  Company Number: 2011PROUSA00744

PATIENT
  Age: 57 Year
  Sex: Male
  Weight: 78.9 kg

DRUGS (19)
  1. PROVENGE [Suspect]
     Dosage: 250 ML, SINGLE, INTRAVENOUS
     Route: 042
     Dates: start: 20111006, end: 20111006
  2. ASPIRIN [Concomitant]
  3. FISH OIL (FISH OIL) [Concomitant]
  4. MULTI-VIT (VITAMINS NOS) [Concomitant]
  5. CIALIS [Concomitant]
  6. COMPAZINE /00013302/ (PROCHLORPERAZINE EDISYLATE) [Concomitant]
  7. FOLVITE /00024201/ (FOLIC ACID) [Concomitant]
  8. PROVENGE [Suspect]
     Dosage: 250 ML, SINGLE, INTRAVENOUS
     Route: 042
     Dates: start: 20111020, end: 20111020
  9. TOPROL-XL [Concomitant]
  10. PROVENGE [Suspect]
     Indication: PROSTATE CANCER METASTATIC
     Dosage: 250 ML, SINGLE, INTRAVENOUS
     Route: 042
     Dates: start: 20110922, end: 20110922
  11. LUPRON [Concomitant]
  12. VOLTAREN [Concomitant]
  13. PROPECIA [Concomitant]
  14. ZOCOR [Concomitant]
  15. ATROVENT [Concomitant]
  16. LOTREL [Concomitant]
  17. NEURONTIN [Concomitant]
  18. VICODIN (HYROCODONE BITARTRATE, PARACETAMOL) [Concomitant]
  19. MAG-OX (MAGNESIUM OXIDE) [Concomitant]

REACTIONS (5)
  - PLEURITIC PAIN [None]
  - LUNG NEOPLASM [None]
  - ATRIAL TACHYCARDIA [None]
  - PLEURAL EFFUSION [None]
  - INFUSION RELATED REACTION [None]
